FAERS Safety Report 25089597 (Version 1)
Quarter: 2025Q1

REPORT INFORMATION
  Report Type: Spontaneous
  Country: GB (occurrence: GB)
  Receive Date: 20250318
  Receipt Date: 20250318
  Transmission Date: 20250409
  Serious: Yes (Other)
  Sender: SAMSUNG BIOEPIS
  Company Number: GB-MHRA-WEBRADR-202503071202479070-QDJPW

PATIENT
  Age: 30 Year
  Sex: Female

DRUGS (1)
  1. INFLIXIMAB [Suspect]
     Active Substance: INFLIXIMAB
     Indication: Crohn^s disease
     Dates: start: 20250306, end: 20250306

REACTIONS (2)
  - Chest discomfort [Recovered/Resolved]
  - Flushing [Recovered/Resolved]

NARRATIVE: CASE EVENT DATE: 20250306
